FAERS Safety Report 4583820-2 (Version None)
Quarter: 2005Q1

REPORT INFORMATION
  Report Type: 
  Country: None (occurrence: None)
  Receive Date: 20050211
  Receipt Date: 20050131
  Transmission Date: 20050727
  Serious: Yes (Hospitalization, Other)
  Sender: FDA-Public Use
  Company Number: 2005020992

PATIENT
  Age: 52 Year
  Sex: Male

DRUGS (2)
  1. CARDENALIN (DOXAZOSIN) [Suspect]
     Indication: HYPERTENSION
     Dosage: 50 MG, ORAL
     Route: 048
     Dates: end: 20050124
  2. NIFEDIPINE [Suspect]
     Indication: HYPERTENSION
     Dosage: 2 GRAM, ORAL
     Route: 048
     Dates: end: 20050124

REACTIONS (5)
  - BLOOD PRESSURE DECREASED [None]
  - DIZZINESS [None]
  - GENERAL PHYSICAL CONDITION ABNORMAL [None]
  - INTENTIONAL MISUSE [None]
  - SUICIDE ATTEMPT [None]
